FAERS Safety Report 4333978-5 (Version None)
Quarter: 2004Q2

REPORT INFORMATION
  Report Type: 
  Country: None (occurrence: None)
  Receive Date: 20040402
  Receipt Date: 20040323
  Transmission Date: 20050107
  Serious: Yes (Hospitalization)
  Sender: FDA-Public Use
  Company Number: S04-USA-01533-01

PATIENT
  Age: 51 Year
  Sex: Female

DRUGS (5)
  1. LEXAPRO [Suspect]
     Indication: DEPRESSION
     Dosage: 10 MG QD PO
     Route: 048
     Dates: start: 20040222
  2. CLYBURIDE [Concomitant]
  3. LISINOPRIL [Concomitant]
  4. CLARINEX [Concomitant]
  5. TOPAMAX [Concomitant]

REACTIONS (3)
  - AURA [None]
  - GRAND MAL CONVULSION [None]
  - LOSS OF CONSCIOUSNESS [None]
